FAERS Safety Report 5060790-4 (Version None)
Quarter: 2006Q3

REPORT INFORMATION
  Report Type: 
  Country: None (occurrence: None)
  Receive Date: 20060719
  Receipt Date: 20060719
  Transmission Date: 20061208
  Serious: Yes (Life-Threatening, Hospitalization)
  Sender: FDA-Public Use
  Company Number: None

PATIENT
  Sex: Male
  Weight: 101.6057 kg

DRUGS (2)
  1. PEGASYS [Suspect]
     Indication: HEPATITIS C
     Dosage: 180 MCG QW SQ
     Route: 058
     Dates: start: 20051101, end: 20060430
  2. RIBAVIRIN [Suspect]
     Indication: HEPATITIS C
     Dosage: 200MG X 6 QD PO
     Route: 048
     Dates: start: 20051101, end: 20060430

REACTIONS (2)
  - DEEP VEIN THROMBOSIS [None]
  - PULMONARY EMBOLISM [None]
